FAERS Safety Report 24421637 (Version 8)
Quarter: 2025Q1

REPORT INFORMATION
  Report Type: Report from Study
  Country: AR (occurrence: AR)
  Receive Date: 20241010
  Receipt Date: 20250205
  Transmission Date: 20250408
  Serious: Yes (Hospitalization, Other)
  Sender: AMGEN
  Company Number: AR-AMGEN-ARGSL2024153630

PATIENT
  Age: 65 Year
  Sex: Male

DRUGS (1)
  1. VECTIBIX [Suspect]
     Active Substance: PANITUMUMAB
     Indication: Colorectal cancer
     Route: 065
     Dates: start: 20240731

REACTIONS (17)
  - White blood cell count decreased [Unknown]
  - Pyrexia [Unknown]
  - Stomatitis [Unknown]
  - Mucosal inflammation [Unknown]
  - Pharyngeal ulceration [Unknown]
  - Oesophageal ulcer [Unknown]
  - Psoas abscess [Unknown]
  - Ileostomy [Unknown]
  - Rash [Unknown]
  - Dehydration [Unknown]
  - Fatigue [Unknown]
  - Bacterial test positive [Unknown]
  - Decreased immune responsiveness [Unknown]
  - Red blood cell count decreased [Unknown]
  - Procedural pain [Unknown]
  - Blood creatinine decreased [Unknown]
  - Abdominal discomfort [Recovered/Resolved]

NARRATIVE: CASE EVENT DATE: 20240101
